FAERS Safety Report 4388119-5 (Version None)
Quarter: 2004Q2

REPORT INFORMATION
  Report Type: 
  Country: None (occurrence: None)
  Receive Date: 20040629
  Receipt Date: 20040629
  Transmission Date: 20050107
  Serious: No
  Sender: FDA-Public Use
  Company Number: None

PATIENT
  Age: 34 Year
  Sex: Female
  Weight: 61 kg

DRUGS (4)
  1. VANCOMYCIN [Suspect]
     Indication: PNEUMONIA STAPHYLOCOCCAL
     Dosage: 1000MG Q 24H INTRAVENOUS
     Route: 042
     Dates: start: 20040616, end: 20040623
  2. FLUCYTOSIN [Concomitant]
  3. AMBISOME [Concomitant]
  4. CEFTAZIDIME [Concomitant]

REACTIONS (1)
  - LEUKOPENIA [None]
